FAERS Safety Report 25945094 (Version 1)
Quarter: 2025Q4

REPORT INFORMATION
  Report Type: Spontaneous
  Country: EU (occurrence: EU)
  Receive Date: 20251021
  Receipt Date: 20251021
  Transmission Date: 20260117
  Serious: Yes (Death)
  Sender: JOHNSON AND JOHNSON
  Company Number: EU-JNJFOC-20251024057

PATIENT
  Sex: Male
  Weight: 70 kg

DRUGS (2)
  1. TECLISTAMAB [Suspect]
     Active Substance: TECLISTAMAB
     Indication: Plasma cell myeloma
     Dosage: 1ST ADMINISTRATION OF TECLISTAMAB
     Route: 065
     Dates: start: 20230916
  2. TECLISTAMAB [Suspect]
     Active Substance: TECLISTAMAB
     Dosage: FINAL CESSATION OF TREATMENT
     Route: 065
     Dates: end: 20240529

REACTIONS (1)
  - Cerebrovascular accident [Fatal]
